FAERS Safety Report 11755801 (Version 2)
Quarter: 2015Q4

REPORT INFORMATION
  Report Type: Spontaneous
  Country: IL (occurrence: IL)
  Receive Date: 20151119
  Receipt Date: 20151127
  Transmission Date: 20160304
  Serious: Yes (Hospitalization)
  Sender: FDA-Public Use
  Company Number: IL-ABBVIE-15P-082-1499253-00

PATIENT
  Age: 84 Year
  Sex: Male

DRUGS (2)
  1. VIEKIRAX [Suspect]
     Active Substance: OMBITASVIR\PARITAPREVIR\RITONAVIR
     Indication: HEPATITIS C
     Route: 048
     Dates: start: 20150907
  2. EXVIERA [Suspect]
     Active Substance: DASABUVIR
     Indication: HEPATITIS C
     Route: 048
     Dates: start: 20150907

REACTIONS (7)
  - Erythema [Recovering/Resolving]
  - Pruritus [Recovering/Resolving]
  - Fall [Unknown]
  - Vision blurred [Recovering/Resolving]
  - Incorrect drug administration duration [Unknown]
  - Femur fracture [Unknown]
  - Asthenia [Unknown]

NARRATIVE: CASE EVENT DATE: 201509
